FAERS Safety Report 20667692 (Version 4)
Quarter: 2022Q2

REPORT INFORMATION
  Report Type: Spontaneous
  Country: CN (occurrence: CN)
  Receive Date: 20220404
  Receipt Date: 20220509
  Transmission Date: 20220721
  Serious: Yes (Death, Hospitalization, Other)
  Sender: FDA-Public Use
  Company Number: CN-SA-SAC20220331000940

PATIENT
  Age: 66 Year
  Sex: Male
  Weight: 55 kg

DRUGS (15)
  1. TAXOTERE [Suspect]
     Active Substance: DOCETAXEL
     Indication: Gastric cancer
     Dosage: 114.5 MG
     Route: 042
  2. ALBUMIN HUMAN [Concomitant]
     Active Substance: ALBUMIN HUMAN
     Dosage: 10 G, QD
  3. POTASSIUM CHLORIDE [Concomitant]
     Active Substance: POTASSIUM CHLORIDE
     Dosage: 10 ML, TID
     Route: 048
     Dates: start: 20220323
  4. POTASSIUM CHLORIDE [Concomitant]
     Active Substance: POTASSIUM CHLORIDE
     Dates: start: 20220326
  5. OPRELVEKIN [Concomitant]
     Active Substance: OPRELVEKIN
     Dosage: 1.5 MG, QD
     Dates: start: 20220323
  6. OPRELVEKIN [Concomitant]
     Active Substance: OPRELVEKIN
     Dates: start: 20220325
  7. LIDOCAINE HYDROCHLORIDE [Concomitant]
     Active Substance: LIDOCAINE HYDROCHLORIDE
     Dosage: 1.5 MG, QD
     Dates: start: 20220323
  8. VITAMIN C [Concomitant]
     Active Substance: ASCORBIC ACID
     Dosage: 1 G, QD
     Route: 042
     Dates: start: 20220323
  9. VITAMIN C [Concomitant]
     Active Substance: ASCORBIC ACID
     Route: 042
     Dates: start: 20220326
  10. LOPERAMIDE [Concomitant]
     Active Substance: LOPERAMIDE
     Dosage: 1 G, QD
     Dates: start: 20220323
  11. AZITHROMYCIN [Concomitant]
     Active Substance: AZITHROMYCIN
     Dosage: 0.5 G, QD
     Dates: start: 20220323
  12. PHOSPHOLIPID [Concomitant]
     Active Substance: PHOSPHOLIPID
     Dosage: 20 ML, QD
     Dates: start: 20220325
  13. COMPOUND AMINO ACID INJECTION (14AA) [Concomitant]
     Dosage: 500 ML, QD
     Dates: start: 20220326
  14. RECOMBINANT HUMAN ERYTHROPOIETIN INJECTION (CHO CELL) [Concomitant]
     Dosage: 6000 IU, QD
     Dates: start: 20220326
  15. LACTULOSE [Concomitant]
     Active Substance: LACTULOSE
     Dosage: 10 ML, TID
     Route: 048
     Dates: start: 20220327

REACTIONS (17)
  - Hypoalbuminaemia [Fatal]
  - Anaemia [Fatal]
  - Ascites [Fatal]
  - Gastric cancer [Fatal]
  - Disseminated intravascular coagulation [Fatal]
  - Cachexia [Fatal]
  - Cardiac arrest [Unknown]
  - Respiratory arrest [Unknown]
  - Coma [Unknown]
  - Abdominal distension [Unknown]
  - Hypoproteinaemia [Unknown]
  - Skin discolouration [Unknown]
  - Dyspnoea [Unknown]
  - Wheezing [Unknown]
  - Skin haemorrhage [Unknown]
  - Mental fatigue [Unknown]
  - Hypotension [Unknown]

NARRATIVE: CASE EVENT DATE: 20220301
